FAERS Safety Report 17764085 (Version 1)
Quarter: 2020Q2

REPORT INFORMATION
  Report Type: Spontaneous
  Country: FR (occurrence: FR)
  Receive Date: 20200511
  Receipt Date: 20200511
  Transmission Date: 20200714
  Serious: Yes (Death)
  Sender: FDA-Public Use
  Company Number: FR-ROCHE-2591001

PATIENT
  Age: 62 Year
  Sex: Female
  Weight: 95 kg

DRUGS (12)
  1. SANDIMMUN [Interacting]
     Active Substance: CYCLOSPORINE
     Indication: PROPHYLAXIS AGAINST TRANSPLANT REJECTION
     Route: 041
     Dates: start: 20190527, end: 20190610
  2. NEORAL [Interacting]
     Active Substance: CYCLOSPORINE
     Indication: PROPHYLAXIS AGAINST TRANSPLANT REJECTION
     Route: 048
     Dates: start: 20190610, end: 20190702
  3. BLINCYTO [Interacting]
     Active Substance: BLINATUMOMAB
     Indication: ACUTE LEUKAEMIA
     Dosage: CF COMMENTAIRES
     Route: 041
     Dates: start: 20190318, end: 20190521
  4. CELLCEPT [Interacting]
     Active Substance: MYCOPHENOLATE MOFETIL\MYCOPHENOLATE MOFETIL HYDROCHLORIDE
     Indication: PROPHYLAXIS AGAINST TRANSPLANT REJECTION
     Route: 048
     Dates: start: 20190610, end: 20190702
  5. KIDROLASE [Interacting]
     Active Substance: ASPARAGINASE
     Indication: ACUTE LYMPHOCYTIC LEUKAEMIA
     Route: 041
     Dates: start: 20190111, end: 20190111
  6. FLUDARABINE [Interacting]
     Active Substance: FLUDARABINE PHOSPHATE
     Indication: ACUTE LYMPHOCYTIC LEUKAEMIA
     Route: 041
     Dates: start: 20190524, end: 20190527
  7. METHOTREXATE. [Interacting]
     Active Substance: METHOTREXATE
     Route: 041
     Dates: start: 20190110, end: 20190110
  8. CYTARABINE. [Interacting]
     Active Substance: CYTARABINE
     Indication: ACUTE LYMPHOCYTIC LEUKAEMIA
     Dosage: CF COMMENTAIRES
     Route: 037
     Dates: start: 20181111, end: 20190510
  9. CELLCEPT [Suspect]
     Active Substance: MYCOPHENOLATE MOFETIL\MYCOPHENOLATE MOFETIL HYDROCHLORIDE
     Indication: PROPHYLAXIS AGAINST TRANSPLANT REJECTION
     Route: 041
     Dates: start: 20190527, end: 20190610
  10. VINCRISTINE SULFATE. [Interacting]
     Active Substance: VINCRISTINE SULFATE
     Indication: ACUTE LYMPHOCYTIC LEUKAEMIA
     Dosage: CF COMMENTAIRES
     Route: 041
     Dates: start: 20181112, end: 20190311
  11. METHYLPREDNISOLONE. [Interacting]
     Active Substance: METHYLPREDNISOLONE
     Indication: ACUTE LYMPHOCYTIC LEUKAEMIA
     Dosage: CF COMMENTAIRES
     Route: 037
     Dates: start: 20181111, end: 20190510
  12. METHOTREXATE. [Interacting]
     Active Substance: METHOTREXATE
     Indication: ACUTE LYMPHOCYTIC LEUKAEMIA
     Dosage: CF COMMENTAIRES
     Route: 037
     Dates: start: 20181108, end: 20190510

REACTIONS (8)
  - Meningitis aseptic [Fatal]
  - Mutism [Fatal]
  - Leukoencephalopathy [Fatal]
  - Quadriplegia [Fatal]
  - Neuralgia [Fatal]
  - Drug interaction [Unknown]
  - Hypoaesthesia [Fatal]
  - Somnolence [Fatal]

NARRATIVE: CASE EVENT DATE: 20190626
